FAERS Safety Report 23431818 (Version 2)
Quarter: 2024Q1

REPORT INFORMATION
  Report Type: Spontaneous
  Country: GB (occurrence: GB)
  Receive Date: 20240123
  Receipt Date: 20240220
  Transmission Date: 20240410
  Serious: Yes (Hospitalization)
  Sender: FDA-Public Use
  Company Number: GB-MYLANLABS-2024M1006286

PATIENT
  Age: 3 Decade
  Sex: Female

DRUGS (19)
  1. ONDANSETRON [Suspect]
     Active Substance: ONDANSETRON
     Indication: Antiemetic supportive care
     Dosage: 4 MILLIGRAM
     Route: 042
  2. SYNTOCINON [Suspect]
     Active Substance: OXYTOCIN
     Indication: Labour induction
     Dosage: 40 INTERNATIONAL UNIT (RECEIVED AT A RATE OF 10 IU/HOUR)
     Route: 042
  3. SYNTOCINON [Suspect]
     Active Substance: OXYTOCIN
     Indication: Postpartum haemorrhage
  4. SYNTOCINON [Suspect]
     Active Substance: OXYTOCIN
     Indication: Postpartum haemorrhage
     Dosage: 10 INTERNATIONAL UNIT (RECEIVED STAT DOSE)
     Route: 030
  5. TRANEXAMIC ACID [Suspect]
     Active Substance: TRANEXAMIC ACID
     Indication: Postpartum haemorrhage
     Dosage: 1 GRAM (RECEIVED STAT DOSE )
     Route: 042
  6. FENTANYL [Suspect]
     Active Substance: FENTANYL\FENTANYL CITRATE
     Indication: Epidural analgesia
     Dosage: 20 MICROGRAM
     Route: 008
  7. FENTANYL [Suspect]
     Active Substance: FENTANYL\FENTANYL CITRATE
     Dosage: 20 MICROGRAM, Q30MIN
     Route: 008
  8. FENTANYL [Suspect]
     Active Substance: FENTANYL\FENTANYL CITRATE
     Dosage: 100 MICROGRAM
     Route: 008
  9. LEVOBUPIVACAINE [Suspect]
     Active Substance: LEVOBUPIVACAINE
     Indication: Epidural analgesia
     Dosage: 4 MILLILITER
     Route: 008
  10. LEVOBUPIVACAINE [Suspect]
     Active Substance: LEVOBUPIVACAINE
     Dosage: 20 MILLILITER
     Route: 008
  11. LEVOBUPIVACAINE [Suspect]
     Active Substance: LEVOBUPIVACAINE
     Indication: Epidural analgesia
     Dosage: 10 MILLILITER
     Route: 008
  12. LEVOBUPIVACAINE [Suspect]
     Active Substance: LEVOBUPIVACAINE
     Dosage: 10 MILLILITER, Q30MIN
     Route: 008
  13. LIDOCAINE HYDROCHLORIDE [Suspect]
     Active Substance: LIDOCAINE HYDROCHLORIDE
     Indication: Local anaesthesia
     Dosage: 10 MILLILITER (RECEIVED VIA PERINEAL INFILTRATION)
     Route: 065
  14. ERGONOVINE\OXYTOCIN [Suspect]
     Active Substance: ERGONOVINE\OXYTOCIN
     Indication: Postpartum haemorrhage
     Dosage: UNK (RECEIVED AT 5IU/500MCG STAT DOSE )
     Route: 030
  15. MISOPROSTOL [Suspect]
     Active Substance: MISOPROSTOL
     Indication: Postpartum haemorrhage
     Dosage: 1000 MICROGRAM
     Route: 054
  16. CARBOPROST [Suspect]
     Active Substance: CARBOPROST
     Indication: Postpartum haemorrhage
     Dosage: 250 MICROGRAM (RECEIVED STAT DOSE  )
     Route: 030
  17. CARBOPROST [Suspect]
     Active Substance: CARBOPROST
     Indication: Postpartum haemorrhage
     Dosage: UNK, (RECEIVED SECOND DOSE; DOSE UNKNOWN)
     Route: 065
  18. CEFUROXIME [Concomitant]
     Active Substance: CEFUROXIME
     Indication: Antibiotic prophylaxis
     Dosage: 1.5 GRAM
     Route: 042
  19. METRONIDAZOLE [Concomitant]
     Active Substance: METRONIDAZOLE
     Indication: Antibiotic prophylaxis
     Dosage: 500 MILLIGRAM
     Route: 042

REACTIONS (4)
  - Dyskinesia [Recovered/Resolved]
  - Drug ineffective [Unknown]
  - Maternal exposure during pregnancy [Recovered/Resolved]
  - Normal newborn [Recovered/Resolved]
